FAERS Safety Report 4519859-2 (Version None)
Quarter: 2004Q4

REPORT INFORMATION
  Report Type: 
  Country: None (occurrence: None)
  Receive Date: 20041207
  Receipt Date: 20041124
  Transmission Date: 20050328
  Serious: Yes (Other)
  Sender: FDA-Public Use
  Company Number: 200412673DE

PATIENT
  Age: 71 Year
  Sex: Female

DRUGS (8)
  1. LANTUS [Suspect]
     Dates: start: 20020101
  2. HUMALOG [Concomitant]
  3. VALORON N [Concomitant]
     Dosage: DOSE: 50 / 8
  4. KREON [Concomitant]
  5. PLAVIX [Concomitant]
  6. COSOPT [Concomitant]
  7. XALATAN [Concomitant]
  8. LIPIDIL [Concomitant]

REACTIONS (1)
  - RETINAL DISORDER [None]
